FAERS Safety Report 5688327-7 (Version None)
Quarter: 2008Q1

REPORT INFORMATION
  Report Type: 
  Country: None (occurrence: None)
  Receive Date: 20080328
  Receipt Date: 20080328
  Transmission Date: 20080703
  Serious: Yes (Life-Threatening)
  Sender: FDA-Public Use
  Company Number: None

PATIENT
  Sex: Female
  Weight: 60.3284 kg

DRUGS (1)
  1. MIRENA [Suspect]
     Indication: CONTRACEPTION
     Dates: start: 20071030, end: 20080206

REACTIONS (6)
  - ARTHRALGIA [None]
  - DEPRESSION [None]
  - DRUG EXPOSURE VIA BREAST MILK [None]
  - HORMONE LEVEL ABNORMAL [None]
  - MOBILITY DECREASED [None]
  - SUICIDAL IDEATION [None]
